FAERS Safety Report 23654504 (Version 1)
Quarter: 2024Q1

REPORT INFORMATION
  Report Type: Spontaneous
  Country: CN (occurrence: CN)
  Receive Date: 20240320
  Receipt Date: 20240320
  Transmission Date: 20240410
  Serious: Yes (Hospitalization, Other)
  Sender: FDA-Public Use
  Company Number: CN-009507513-2403CHN005515

PATIENT
  Age: 62 Year
  Sex: Male
  Weight: 74 kg

DRUGS (4)
  1. KEYTRUDA [Suspect]
     Active Substance: PEMBROLIZUMAB
     Indication: Lung neoplasm malignant
     Dosage: TOTAL 13 DOSES
     Route: 041
     Dates: start: 20221008, end: 202306
  2. KEYTRUDA [Suspect]
     Active Substance: PEMBROLIZUMAB
     Dosage: 200 MG D1, ONCE, IV DRIP
     Route: 041
     Dates: start: 20231118, end: 20231118
  3. SODIUM CHLORIDE [Concomitant]
     Active Substance: SODIUM CHLORIDE
     Dosage: 100 MILLILITER, TOTAL 13 DOSES
     Route: 041
     Dates: start: 20221008, end: 202306
  4. PACLITAXEL [Concomitant]
     Active Substance: PACLITAXEL
     Indication: Lung neoplasm malignant
     Dosage: 200 MILLIGRAM, D1
     Dates: start: 20231108, end: 20231108

REACTIONS (10)
  - Immune-mediated hepatitis [Recovering/Resolving]
  - Malignant neoplasm progression [Unknown]
  - Porcelain gallbladder [Unknown]
  - Ascites [Unknown]
  - Pericardial effusion [Unknown]
  - Gastrooesophageal reflux disease [Unknown]
  - Splenomegaly [Unknown]
  - Spinal disorder [Unknown]
  - Bone lesion [Unknown]
  - Cholelithiasis [Unknown]

NARRATIVE: CASE EVENT DATE: 20231122
